FAERS Safety Report 14624941 (Version 1)
Quarter: 2018Q1

REPORT INFORMATION
  Report Type: Spontaneous
  Country: OM (occurrence: OM)
  Receive Date: 20180312
  Receipt Date: 20180312
  Transmission Date: 20180509
  Serious: Yes (Other)
  Sender: FDA-Public Use
  Company Number: OM-009507513-1803OMN003976

PATIENT

DRUGS (1)
  1. ALENDRONATE SODIUM. [Suspect]
     Active Substance: ALENDRONATE SODIUM
     Dosage: UNK
     Route: 048

REACTIONS (1)
  - Seizure [Unknown]
